FAERS Safety Report 9200691 (Version 1)
Quarter: 2013Q1

REPORT INFORMATION
  Report Type: Spontaneous
  Country: US (occurrence: US)
  Receive Date: 20130331
  Receipt Date: 20130331
  Transmission Date: 20140127
  Serious: No
  Sender: FDA-Public Use
  Company Number: US-009507513-1303USA012368

PATIENT
  Sex: Male

DRUGS (1)
  1. COZAAR [Suspect]
     Dosage: 50MG, ALSO WAS SPLITTING HIS TABLET IN HALF
     Route: 048

REACTIONS (2)
  - Dizziness [Unknown]
  - Wrong technique in drug usage process [Unknown]
